FAERS Safety Report 8509591-2 (Version None)
Quarter: 2012Q3

REPORT INFORMATION
  Report Type: 
  Country: None (occurrence: None)
  Receive Date: 20120713
  Receipt Date: 20120706
  Transmission Date: 20120928
  Serious: Yes (Other)
  Sender: FDA-Public Use
  Company Number: CA-JNJFOC-20120703292

PATIENT
  Sex: Female
  Weight: 76.2 kg

DRUGS (7)
  1. CITALOPRAM HYDROBROMIDE [Concomitant]
     Route: 048
  2. REMICADE [Suspect]
     Indication: CROHN'S DISEASE
     Route: 042
     Dates: start: 20120620
  3. EURO FOLIC [Concomitant]
     Route: 048
  4. METHOTREXATE [Concomitant]
     Route: 048
  5. QUETIAPINE [Concomitant]
     Route: 048
  6. NEXIUM [Concomitant]
     Dosage: 40 MG 2 TABLETS
     Route: 048
  7. CELEBREX [Concomitant]
     Route: 048

REACTIONS (4)
  - RESPIRATORY DISORDER [None]
  - PYREXIA [None]
  - BACK PAIN [None]
  - CHILLS [None]
